FAERS Safety Report 16897466 (Version 1)
Quarter: 2019Q4

REPORT INFORMATION
  Report Type: Spontaneous
  Country: US (occurrence: US)
  Receive Date: 20191009
  Receipt Date: 20191009
  Transmission Date: 20200122
  Serious: Yes (Other)
  Sender: FDA-Public Use
  Company Number: US-JNJFOC-20191000521

PATIENT
  Sex: Female

DRUGS (1)
  1. WOMENS ROGAINE UNSCENTED [Suspect]
     Active Substance: MINOXIDIL
     Indication: PRODUCT USED FOR UNKNOWN INDICATION
     Route: 065
     Dates: start: 201902, end: 201904

REACTIONS (9)
  - Blood pressure increased [Unknown]
  - Hypersensitivity [Unknown]
  - Eye disorder [Unknown]
  - Migraine [Unknown]
  - Respiratory disorder [Unknown]
  - Hepatotoxicity [Unknown]
  - Eye swelling [Unknown]
  - Palpitations [Unknown]
  - Fear of death [Unknown]

NARRATIVE: CASE EVENT DATE: 20190216
